FAERS Safety Report 7771625-0 (Version None)
Quarter: 2011Q3

REPORT INFORMATION
  Report Type: 
  Country: None (occurrence: None)
  Receive Date: 20110922
  Receipt Date: 20110308
  Transmission Date: 20111222
  Serious: Yes (Other)
  Sender: FDA-Public Use
  Company Number: US-ASTRAZENECA-2011SE05554

PATIENT
  Age: 739 Month
  Sex: Male
  Weight: 111.1 kg

DRUGS (5)
  1. SEROQUEL [Suspect]
     Route: 048
     Dates: start: 20040601, end: 20100301
  2. MULTI-VITAMINS [Concomitant]
     Dates: start: 20091201
  3. HYDROCHLOROTHIAZIDE [Concomitant]
     Indication: HYPERTENSION
     Dates: start: 20091201
  4. SEROQUEL [Suspect]
     Route: 048
     Dates: start: 20100301, end: 20110101
  5. SEROQUEL [Suspect]
     Indication: SCHIZOPHRENIA
     Route: 048
     Dates: start: 20020501, end: 20040601

REACTIONS (2)
  - WEIGHT INCREASED [None]
  - DIABETES MELLITUS [None]
